FAERS Safety Report 5395671-X (Version None)
Quarter: 2007Q3

REPORT INFORMATION
  Report Type: 
  Country: None (occurrence: None)
  Receive Date: 20070724
  Receipt Date: 20070629
  Transmission Date: 20080115
  Serious: Yes (Other)
  Sender: FDA-Public Use
  Company Number: CN-BOEHRINGER INGELHEIM PHARMACEUTICALS, INC.-2007-BP-17797SG

PATIENT
  Age: 18 Day

DRUGS (1)
  1. MOBIC [Suspect]
     Indication: HEADACHE
     Route: 015

REACTIONS (1)
  - HYPERBILIRUBINAEMIA NEONATAL [None]
